FAERS Safety Report 8868582 (Version 2)
Quarter: 2012Q4

REPORT INFORMATION
  Report Type: 
  Country: US (occurrence: US)
  Receive Date: 20121024
  Receipt Date: 20121114
  Transmission Date: 20130627
  Serious: Yes (Hospitalization)
  Sender: FDA-Public Use
  Company Number: US-JNJFOC-20121009708

PATIENT
  Age: 78 Year
  Sex: Female
  Weight: 94.3 kg

DRUGS (7)
  1. XARELTO [Suspect]
     Indication: THROMBOSIS PROPHYLAXIS
     Route: 048
     Dates: start: 20120731, end: 20120805
  2. XARELTO [Suspect]
     Indication: KNEE ARTHROPLASTY
     Route: 048
     Dates: start: 20120731, end: 20120805
  3. LEVOTHYROXINE [Concomitant]
  4. PERCOCET [Concomitant]
  5. FISH OIL [Concomitant]
  6. METOPROLOL [Concomitant]
  7. SIMVASTATIN [Concomitant]

REACTIONS (1)
  - Pulmonary embolism [Recovering/Resolving]
